FAERS Safety Report 4947948-7 (Version None)
Quarter: 2006Q1

REPORT INFORMATION
  Report Type: 
  Country: None (occurrence: None)
  Receive Date: 20060314
  Receipt Date: 20060301
  Transmission Date: 20060701
  Serious: Yes (Hospitalization)
  Sender: FDA-Public Use
  Company Number: 2006PV009872

PATIENT
  Age: 72 Year
  Sex: Female
  Weight: 123.3784 kg

DRUGS (15)
  1. BYETTA [Suspect]
     Indication: DIABETES MELLITUS NON-INSULIN-DEPENDENT
     Dosage: 5 MCG; BID;SC
     Route: 058
     Dates: start: 20051201, end: 20060203
  2. AMARYL [Concomitant]
  3. TOPROL-XL [Concomitant]
  4. SYNTHROID [Concomitant]
  5. LOTREL [Concomitant]
  6. LIPITOR [Concomitant]
  7. ALLOPURINOL [Concomitant]
  8. ASPIRIN [Concomitant]
  9. DOCUSATE CALCIUM [Concomitant]
  10. ACETAMINOPHEN [Concomitant]
  11. NORVASC [Concomitant]
  12. NOVOLOG [Concomitant]
  13. LISINOPRIL [Concomitant]
  14. PROTONIX [Concomitant]
  15. PROMETHAZINE [Concomitant]

REACTIONS (6)
  - ASTHENIA [None]
  - BLOOD GLUCOSE INCREASED [None]
  - HYPERTENSION [None]
  - LABYRINTHITIS [None]
  - VIRAL INFECTION [None]
  - WEIGHT DECREASED [None]
